FAERS Safety Report 15402983 (Version 1)
Quarter: 2018Q3

REPORT INFORMATION
  Report Type: Spontaneous
  Country: US (occurrence: US)
  Receive Date: 20180917
  Receipt Date: 20180917
  Transmission Date: 20181010
  Serious: Yes (Other)
  Sender: FDA-Public Use
  Company Number: None

PATIENT
  Age: 63 Year
  Sex: Female
  Weight: 63 kg

DRUGS (6)
  1. INGREZZA [Suspect]
     Active Substance: VALBENAZINE
     Indication: TARDIVE DYSKINESIA
     Route: 048
     Dates: start: 20171128, end: 20180917
  2. BUPROPION 200MG/D [Concomitant]
  3. METHYLPHENIDATE 40?660MG/DAY [Concomitant]
  4. CARBAMAZEPINE 200MG/DAY [Concomitant]
  5. ALENDRONATE 35MG/WEEK [Concomitant]
  6. RALOXIFENE 60MG/DAY [Concomitant]

REACTIONS (3)
  - Sexual dysfunction [None]
  - Loss of libido [None]
  - Libido decreased [None]

NARRATIVE: CASE EVENT DATE: 20180917
